FAERS Safety Report 24796680 (Version 2)
Quarter: 2025Q2

REPORT INFORMATION
  Report Type: Report from Study
  Country: US (occurrence: US)
  Receive Date: 20250101
  Receipt Date: 20250423
  Transmission Date: 20250717
  Serious: Yes (Other)
  Sender: UCB
  Company Number: US-UCBSA-2024068540

PATIENT
  Sex: Male

DRUGS (1)
  1. BIMEKIZUMAB [Suspect]
     Active Substance: BIMEKIZUMAB
     Indication: Psoriatic arthropathy
     Dosage: 320 MILLIGRAM, EV 4 WEEKS
     Route: 058

REACTIONS (13)
  - Psoriatic arthropathy [Not Recovered/Not Resolved]
  - Scrotal haemorrhage [Recovered/Resolved]
  - Skin disorder [Unknown]
  - Oral herpes [Unknown]
  - Lip injury [Unknown]
  - Rash [Unknown]
  - Penile swelling [Recovered/Resolved]
  - Penile erythema [Recovered/Resolved]
  - Penile haemorrhage [Recovered/Resolved]
  - Scrotal swelling [Recovered/Resolved]
  - Scrotal erythema [Recovered/Resolved]
  - Drug ineffective [Unknown]
  - Incorrect dose administered [Unknown]
